FAERS Safety Report 7725151-5 (Version None)
Quarter: 2011Q3

REPORT INFORMATION
  Report Type: 
  Country: None (occurrence: None)
  Receive Date: 20110901
  Receipt Date: 20110825
  Transmission Date: 20111222
  Serious: Yes (Other)
  Sender: FDA-Public Use
  Company Number: FR-GENZYME-CERZ-1002079

PATIENT
  Sex: Female

DRUGS (2)
  1. CEREZYME [Suspect]
     Indication: GAUCHER'S DISEASE
     Dosage: 2800 U, Q4W
     Route: 042
     Dates: start: 20050101, end: 20100401
  2. CEREZYME [Suspect]
     Dosage: UNK
     Route: 042
     Dates: start: 20100901

REACTIONS (1)
  - ABORTION SPONTANEOUS [None]
